FAERS Safety Report 23041060 (Version 2)
Quarter: 2023Q4

REPORT INFORMATION
  Report Type: Report from Study
  Country: US (occurrence: US)
  Receive Date: 20231007
  Receipt Date: 20231210
  Transmission Date: 20240109
  Serious: No
  Sender: FDA-Public Use
  Company Number: US-002147023-NVSC2023US213393

PATIENT
  Sex: Female

DRUGS (1)
  1. TASIGNA [Suspect]
     Active Substance: NILOTINIB
     Indication: Product used for unknown indication
     Dosage: UNK
     Route: 065

REACTIONS (6)
  - Abdominal distension [Unknown]
  - Urinary tract infection [Unknown]
  - Rash [Unknown]
  - Eye irritation [Unknown]
  - Nausea [Unknown]
  - Dehydration [Unknown]
